FAERS Safety Report 9808521 (Version 2)
Quarter: 2014Q1

REPORT INFORMATION
  Report Type: Spontaneous
  Country: BR (occurrence: BR)
  Receive Date: 20140110
  Receipt Date: 20140110
  Transmission Date: 20141002
  Serious: Yes (Death)
  Sender: FDA-Public Use
  Company Number: BR-009507513-1311BRA012571

PATIENT
  Age: 31 Year
  Sex: Female
  Weight: 74 kg

DRUGS (10)
  1. MERCILON [Suspect]
     Indication: CONTRACEPTION
     Dosage: 150/20 MICROGRAM, QD
     Route: 048
     Dates: start: 201309, end: 20131111
  2. MERCILON [Suspect]
     Dosage: 150/20 MICROGRAM, QD
     Route: 048
     Dates: start: 2000
  3. MERCILON [Suspect]
     Dosage: 150/20 MICROGRAM, QD
     Route: 048
  4. ADOLESS [Concomitant]
     Indication: CONTRACEPTION
     Dosage: UNK
     Dates: end: 201309
  5. RIVOTRIL [Concomitant]
     Indication: ANXIETY
     Dosage: 2 MG, PRN
     Route: 048
     Dates: start: 2006
  6. DIAZEPAM (MAGISTRAL FORMULA) [Concomitant]
     Indication: DEPRESSION
     Dosage: 3 DF, QD
     Route: 048
     Dates: start: 2006
  7. BIPERIDEN (MAGISTRAL FORMULA) [Concomitant]
     Indication: DEPRESSION
     Dosage: 3 DF, QD
     Route: 048
     Dates: start: 2006
  8. LEVOMEPROMAZINE (MAGISTRAL FORMULA) [Concomitant]
     Indication: DEPRESSION
     Dosage: 3 DF, QD
     Route: 048
     Dates: start: 2006
  9. CITALOPRAM (MAGISTRAL FORMULA) [Concomitant]
     Indication: DEPRESSION
     Dosage: 3 DF, QD
     Route: 048
     Dates: start: 2006
  10. CLOZAPINE (MAGISTRAL FORMULA) [Concomitant]
     Indication: DEPRESSION
     Dosage: 3 DF, QD
     Route: 048
     Dates: start: 2006

REACTIONS (5)
  - Road traffic accident [Fatal]
  - Unintended pregnancy [Not Recovered/Not Resolved]
  - Abnormal withdrawal bleeding [Not Recovered/Not Resolved]
  - Withdrawal bleed [Recovered/Resolved]
  - Metrorrhagia [Recovered/Resolved]
